FAERS Safety Report 14461406 (Version 1)
Quarter: 2018Q1

REPORT INFORMATION
  Report Type: Spontaneous
  Country: FR (occurrence: FR)
  Receive Date: 20180130
  Receipt Date: 20180130
  Transmission Date: 20180509
  Serious: Yes (Life-Threatening)
  Sender: FDA-Public Use
  Company Number: FR-PFIZER INC-2018037567

PATIENT
  Age: 24 Year
  Sex: Male

DRUGS (4)
  1. DEPAMIDE [Suspect]
     Active Substance: VALPROMIDE
     Dosage: UNK
     Route: 048
     Dates: start: 20171207, end: 20171207
  2. VALIUM [Suspect]
     Active Substance: DIAZEPAM
     Dosage: UNK
     Route: 048
     Dates: start: 20171207, end: 20171207
  3. XANAX [Suspect]
     Active Substance: ALPRAZOLAM
     Dosage: UNK
     Dates: start: 20171207, end: 20171207
  4. METHYLENEDIOXYMETHAMPHETAMINE [Suspect]
     Active Substance: MIDOMAFETAMINE
     Dosage: UNK
     Dates: start: 201712, end: 201712

REACTIONS (2)
  - Agitation [Recovered/Resolved]
  - Delirium [Recovered/Resolved]

NARRATIVE: CASE EVENT DATE: 20171207
